FAERS Safety Report 6236430-5 (Version None)
Quarter: 2009Q2

REPORT INFORMATION
  Report Type: 
  Country: None (occurrence: None)
  Receive Date: 20090619
  Receipt Date: 20070608
  Transmission Date: 20091009
  Serious: Yes (Other)
  Sender: FDA-Public Use
  Company Number: US-ASTRAZENECA-2006UW23073

PATIENT
  Age: 59 Year
  Sex: Female
  Weight: 81.2 kg

DRUGS (15)
  1. SEROQUEL [Suspect]
     Route: 048
     Dates: start: 20040113, end: 20070706
  2. SEROQUEL [Suspect]
     Route: 048
     Dates: start: 20040413, end: 20070706
  3. SEROQUEL [Suspect]
     Route: 048
     Dates: start: 20040101, end: 20050101
  4. RISPERDAL [Concomitant]
     Dates: start: 20030101, end: 20040101
  5. EFFEXOR [Concomitant]
     Dates: start: 20010625
  6. KLONOPIN [Concomitant]
     Dosage: 0.5-1 MG
     Dates: start: 20020502
  7. PROVERA [Concomitant]
     Dates: start: 20020215
  8. PROZAC [Concomitant]
     Dosage: 20-60 MG
     Dates: start: 20020625
  9. RITALIN [Concomitant]
     Dates: start: 20031014, end: 20040113
  10. FLUOXETINE HCL [Concomitant]
     Dates: start: 20040118
  11. LIPITOR [Concomitant]
     Dates: start: 20040318
  12. GLIPIZIDE [Concomitant]
     Dosage: 2.5-5 MG
     Dates: start: 20040727
  13. METFORMIN HCL [Concomitant]
     Dates: start: 20041213
  14. AMBIEN [Concomitant]
     Dates: start: 20041013
  15. WELLBUTRIN [Concomitant]
     Dosage: 100-150 MG
     Dates: start: 20051024

REACTIONS (3)
  - DIABETES MELLITUS [None]
  - DIABETES MELLITUS INADEQUATE CONTROL [None]
  - DIABETIC NEUROPATHY [None]
